FAERS Safety Report 10268780 (Version 2)
Quarter: 2014Q2

REPORT INFORMATION
  Report Type: Spontaneous
  Country: JP (occurrence: JP)
  Receive Date: 20140630
  Receipt Date: 20140630
  Transmission Date: 20141212
  Serious: Yes (Other)
  Sender: FDA-Public Use
  Company Number: PHHY2014JP076336

PATIENT
  Age: 78 Year
  Sex: 0

DRUGS (2)
  1. ULTIBRO BREEZHALER [Suspect]
     Indication: CHRONIC OBSTRUCTIVE PULMONARY DISEASE
     Dosage: UNK
     Route: 055
     Dates: start: 20140520
  2. HARNAL [Concomitant]
     Route: 048

REACTIONS (2)
  - Asthma [Unknown]
  - Urinary retention [Recovering/Resolving]
